FAERS Safety Report 15545780 (Version 2)
Quarter: 2018Q4

REPORT INFORMATION
  Report Type: Report from Study
  Country: GB (occurrence: GB)
  Receive Date: 20181024
  Receipt Date: 20181112
  Transmission Date: 20190205
  Serious: Yes (Life-Threatening, Hospitalization)
  Sender: FDA-Public Use
  Company Number: GB-ROCHE-2203755

PATIENT
  Age: 71 Year
  Sex: Male
  Weight: 86 kg

DRUGS (1)
  1. TENECTEPLASE [Suspect]
     Active Substance: TENECTEPLASE
     Indication: ISCHAEMIC STROKE
     Dosage: SINGLE WEIGHT ADJUSTED BOLUS
     Route: 042
     Dates: start: 20181016

REACTIONS (3)
  - Cerebral infarction [Not Recovered/Not Resolved]
  - Biliary sepsis [Recovering/Resolving]
  - Haemorrhage [Not Recovered/Not Resolved]

NARRATIVE: CASE EVENT DATE: 20181017
